FAERS Safety Report 6734578-X (Version None)
Quarter: 2010Q2

REPORT INFORMATION
  Report Type: 
  Country: None (occurrence: None)
  Receive Date: 20100520
  Receipt Date: 20100319
  Transmission Date: 20101027
  Serious: No
  Sender: FDA-Public Use
  Company Number: US-ALLERGAN-1003676US

PATIENT
  Age: 70 Year
  Sex: Male

DRUGS (4)
  1. SANCTURA XR [Suspect]
     Indication: HYPERTONIC BLADDER
     Dosage: 60 MG, QD
     Route: 048
  2. LISINOPRIL [Concomitant]
  3. BYSTOLIC [Concomitant]
  4. ALLOPURINOL [Concomitant]

REACTIONS (1)
  - BLOOD PRESSURE INCREASED [None]
